FAERS Safety Report 4679837-X (Version None)
Quarter: 2005Q2

REPORT INFORMATION
  Report Type: 
  Country: None (occurrence: None)
  Receive Date: 20050602
  Receipt Date: 20041122
  Transmission Date: 20051028
  Serious: Yes (Other)
  Sender: FDA-Public Use
  Company Number: US-GLAXOSMITHKLINE-A0534855A

PATIENT
  Age: 28 Year
  Sex: Female
  Weight: 72.7 kg

DRUGS (2)
  1. AUGMENTIN [Suspect]
     Indication: UPPER RESPIRATORY TRACT INFECTION
     Dosage: 2TAB TWICE PER DAY
     Route: 048
     Dates: start: 20040415, end: 20040418
  2. DURA-VENT [Concomitant]
     Dosage: 1TAB PER DAY
     Route: 048
     Dates: start: 20040415, end: 20040430

REACTIONS (4)
  - ANAPHYLACTIC REACTION [None]
  - ANGIONEUROTIC OEDEMA [None]
  - BLISTER [None]
  - RASH [None]
